FAERS Safety Report 8213566-0 (Version None)
Quarter: 2012Q1

REPORT INFORMATION
  Report Type: 
  Country: None (occurrence: None)
  Receive Date: 20120315
  Receipt Date: 20120312
  Transmission Date: 20120608
  Serious: Yes (Other)
  Sender: FDA-Public Use
  Company Number: US-ABBOTT-11P-163-0878985-00

PATIENT
  Sex: Male
  Weight: 98.064 kg

DRUGS (15)
  1. VICODIN [Concomitant]
     Indication: PLANTAR FASCIITIS
     Dosage: 5/500 MG PRN
     Route: 048
  2. CALCIUM CARBONATE [Concomitant]
     Indication: PRODUCT USED FOR UNKNOWN INDICATION
  3. COLESTIMINE POWDER [Concomitant]
     Indication: PRODUCT USED FOR UNKNOWN INDICATION
     Dosage: DAILY
  4. VITAMIN D [Concomitant]
     Indication: PRODUCT USED FOR UNKNOWN INDICATION
  5. HUMIRA [Suspect]
     Indication: CROHN'S DISEASE
     Dosage: DAY 1 LOADING DOSE
     Route: 058
     Dates: start: 20111117, end: 20111117
  6. FISH OIL [Concomitant]
     Indication: PRODUCT USED FOR UNKNOWN INDICATION
  7. CARDIZEM [Concomitant]
     Indication: HEART RATE IRREGULAR
     Dosage: 2 PO BID
  8. CITALOPRAM HYDROBROMIDE [Concomitant]
     Indication: PRODUCT USED FOR UNKNOWN INDICATION
     Dosage: 20 MG DAILY
     Route: 048
  9. CLOZAPINE [Concomitant]
     Indication: DEPRESSION
  10. HUMIRA [Suspect]
     Dosage: 80 MG LAST DOSE
     Dates: start: 20111201, end: 20111201
  11. TEMAZEPAM [Concomitant]
     Indication: INSOMNIA
     Dosage: AT NIGHT
     Route: 048
  12. VICODIN [Concomitant]
     Indication: PAIN IN EXTREMITY
  13. POTASSIUM [Concomitant]
     Indication: PRODUCT USED FOR UNKNOWN INDICATION
  14. VIT C [Concomitant]
     Indication: PRODUCT USED FOR UNKNOWN INDICATION
  15. FLECTOR [Concomitant]
     Indication: INFLAMMATION
     Dosage: 1.3 %
     Route: 062

REACTIONS (10)
  - DISCOMFORT [None]
  - NAUSEA [None]
  - THERAPEUTIC RESPONSE UNEXPECTED [None]
  - TESTICULAR SWELLING [None]
  - SLEEP DISORDER [None]
  - UNEVALUABLE EVENT [None]
  - TESTICULAR CYST [None]
  - PAIN [None]
  - TENDERNESS [None]
  - ANXIETY [None]
